FAERS Safety Report 5285583-4 (Version None)
Quarter: 2007Q1

REPORT INFORMATION
  Report Type: 
  Country: None (occurrence: None)
  Receive Date: 20061229
  Receipt Date: 20060926
  Transmission Date: 20070707
  Serious: Yes (Other)
  Sender: FDA-Public Use
  Company Number: 2006UW18767

PATIENT
  Age: 48 Year
  Sex: Male

DRUGS (4)
  1. CRESTOR [Suspect]
     Indication: BLOOD CHOLESTEROL INCREASED
     Dosage: 10 MG PO
     Route: 048
     Dates: start: 20060901
  2. MYSOLINE [Concomitant]
  3. LOPRESSOR [Concomitant]
  4. FOLIC ACID [Concomitant]

REACTIONS (1)
  - RECTAL HAEMORRHAGE [None]
